FAERS Safety Report 23537437 (Version 2)
Quarter: 2024Q1

REPORT INFORMATION
  Report Type: Spontaneous
  Country: US (occurrence: US)
  Receive Date: 20240219
  Receipt Date: 20240311
  Transmission Date: 20240409
  Serious: Yes (Other)
  Sender: FDA-Public Use
  Company Number: US-AMICUS THERAPEUTICS, INC.-AMI_2923

PATIENT
  Sex: Female

DRUGS (7)
  1. GALAFOLD [Suspect]
     Active Substance: MIGALASTAT HYDROCHLORIDE
     Indication: Product used for unknown indication
     Dosage: UNK
     Route: 048
     Dates: start: 202206
  2. FOSINOPRIL [Concomitant]
     Active Substance: FOSINOPRIL
     Indication: Renal impairment
     Dosage: UNK
     Route: 065
  3. FOSINOPRIL [Concomitant]
     Active Substance: FOSINOPRIL
     Indication: Left ventricular hypertrophy
  4. FARXIGA [Concomitant]
     Active Substance: DAPAGLIFLOZIN PROPANEDIOL
     Indication: Renal impairment
     Dosage: UNK
     Route: 065
  5. FARXIGA [Concomitant]
     Active Substance: DAPAGLIFLOZIN PROPANEDIOL
     Indication: Left ventricular hypertrophy
  6. NORVASC [Concomitant]
     Active Substance: AMLODIPINE BESYLATE
     Indication: Renal impairment
     Dosage: UNK
     Route: 065
  7. NORVASC [Concomitant]
     Active Substance: AMLODIPINE BESYLATE
     Indication: Left ventricular hypertrophy

REACTIONS (2)
  - Left ventricular hypertrophy [Unknown]
  - Renal impairment [Unknown]
